FAERS Safety Report 22311014 (Version 1)
Quarter: 2023Q2

REPORT INFORMATION
  Report Type: Spontaneous
  Country: US (occurrence: None)
  Receive Date: 20230510
  Receipt Date: 20230510
  Transmission Date: 20230722
  Serious: No
  Sender: FDA-Public Use
  Company Number: None

PATIENT
  Age: 38 Year
  Sex: Female
  Weight: 61.23 kg

DRUGS (1)
  1. STELARA [Suspect]
     Active Substance: USTEKINUMAB
     Indication: Psoriasis
     Dosage: INJECT 40MG SUBCUTANEOUSLY ON DAY 0 AND DAY 28  AS DIRECTED.     ?
     Route: 058
     Dates: start: 202203

REACTIONS (1)
  - Herpes zoster [None]
